FAERS Safety Report 7214991-7 (Version None)
Quarter: 2011Q1

REPORT INFORMATION
  Report Type: 
  Country: None (occurrence: None)
  Receive Date: 20110107
  Receipt Date: 20100629
  Transmission Date: 20110831
  Serious: No
  Sender: FDA-Public Use
  Company Number: A0867645A

PATIENT
  Age: 75 Year
  Sex: Male

DRUGS (3)
  1. LOVAZA [Suspect]
     Dosage: 6G PER DAY
     Route: 048
     Dates: start: 20080101
  2. PLAVIX [Concomitant]
  3. METOPROLOL [Concomitant]

REACTIONS (2)
  - CONTUSION [None]
  - INCREASED TENDENCY TO BRUISE [None]
